FAERS Safety Report 7368538-5 (Version None)
Quarter: 2011Q1

REPORT INFORMATION
  Report Type: 
  Country: None (occurrence: None)
  Receive Date: 20110311
  Receipt Date: 20110224
  Transmission Date: 20110831
  Serious: Yes (Other)
  Sender: FDA-Public Use
  Company Number: 2011SP008817

PATIENT
  Age: 46 Year
  Sex: Female

DRUGS (1)
  1. AERIUS (DESLORATADINE /01398501/) [Suspect]
     Indication: PRODUCT USED FOR UNKNOWN INDICATION
     Dosage: 1 DF; QD; PO
     Route: 048

REACTIONS (4)
  - MUSCLE TWITCHING [None]
  - RESTLESSNESS [None]
  - AGITATION [None]
  - DRY MOUTH [None]
